FAERS Safety Report 4931974-8 (Version None)
Quarter: 2006Q1

REPORT INFORMATION
  Report Type: 
  Country: None (occurrence: None)
  Receive Date: 20060303
  Receipt Date: 20060207
  Transmission Date: 20060701
  Serious: Yes (Other)
  Sender: FDA-Public Use
  Company Number: US-GLAXOSMITHKLINE-A0592653A

PATIENT
  Age: 47 Year
  Sex: Female

DRUGS (6)
  1. LAMICTAL [Suspect]
     Indication: DRUG USE FOR UNKNOWN INDICATION
     Dosage: 25MG PER DAY
     Route: 048
     Dates: start: 20060101, end: 20060101
  2. EFFEXOR XR [Concomitant]
  3. WELLBUTRIN XL [Concomitant]
  4. DEXTROAMPHETAMINE [Concomitant]
  5. RITALIN [Concomitant]
  6. AMBIEN [Concomitant]

REACTIONS (2)
  - DIARRHOEA [None]
  - FAECAL INCONTINENCE [None]
